FAERS Safety Report 21683630 (Version 2)
Quarter: 2023Q1

REPORT INFORMATION
  Report Type: Spontaneous
  Country: CA (occurrence: CA)
  Receive Date: 20221205
  Receipt Date: 20230106
  Transmission Date: 20230417
  Serious: Yes (Death)
  Sender: FDA-Public Use
  Company Number: CA-BAYER-2022A165872

PATIENT
  Age: 64 Year

DRUGS (1)
  1. STIVARGA [Suspect]
     Active Substance: REGORAFENIB
     Indication: Colorectal cancer metastatic
     Dosage: UNK
     Dates: start: 20220708, end: 20220908

REACTIONS (1)
  - Colon cancer metastatic [Fatal]
